FAERS Safety Report 8542396-5 (Version None)
Quarter: 2012Q3

REPORT INFORMATION
  Report Type: 
  Country: None (occurrence: None)
  Receive Date: 20120726
  Receipt Date: 20110816
  Transmission Date: 20120928
  Serious: Yes (Hospitalization)
  Sender: FDA-Public Use
  Company Number: US-ASTRAZENECA-2011SE49038

PATIENT
  Age: 48 Year
  Sex: Female
  Weight: 86.2 kg

DRUGS (5)
  1. SEROQUEL [Suspect]
     Route: 048
  2. SEROQUEL [Suspect]
     Route: 048
  3. EFFEXOR XR [Concomitant]
     Indication: DEPRESSION
  4. SEROQUEL [Suspect]
     Route: 048
  5. TOPAMAX [Concomitant]
     Indication: WEIGHT CONTROL

REACTIONS (3)
  - SUICIDAL IDEATION [None]
  - INSOMNIA [None]
  - DEPRESSION [None]
